FAERS Safety Report 9645070 (Version 2)
Quarter: 2013Q4

REPORT INFORMATION
  Report Type: Report from Study
  Country: CA (occurrence: CA)
  Receive Date: 20131025
  Receipt Date: 20131025
  Transmission Date: 20140711
  Serious: Yes (Hospitalization)
  Sender: FDA-Public Use
  Company Number: CA-JNJFOC-20130910604

PATIENT
  Age: 55 Year
  Sex: Female
  Weight: 66 kg

DRUGS (13)
  1. REMICADE [Suspect]
     Indication: CROHN^S DISEASE
     Route: 042
     Dates: start: 20130610
  2. ONDANSETRON [Concomitant]
     Route: 065
  3. COUMADIN [Concomitant]
     Route: 065
  4. IMURAN [Concomitant]
     Dosage: 150 (UNITS UNSPECIFIED ONCE A DAY)
     Route: 048
  5. PAROXETINE [Concomitant]
     Route: 065
  6. CYCLOBENZAPRINE [Concomitant]
     Route: 065
  7. FOLIC ACID [Concomitant]
     Route: 065
  8. CLONAZEPAM [Concomitant]
     Route: 065
  9. BUSCOPAN [Concomitant]
     Route: 065
  10. DILAUDID [Concomitant]
     Route: 065
  11. ENTOCORT [Concomitant]
     Route: 065
  12. PREVACID [Concomitant]
     Route: 065
  13. RETISOL-A [Concomitant]
     Route: 065

REACTIONS (8)
  - Pyrexia [Recovered/Resolved]
  - Chills [Recovered/Resolved]
  - Vomiting [Not Recovered/Not Resolved]
  - Nausea [Not Recovered/Not Resolved]
  - Abdominal pain [Unknown]
  - Malaise [Unknown]
  - Feeling abnormal [Unknown]
  - Infection [Unknown]
